FAERS Safety Report 12374251 (Version 1)
Quarter: 2016Q2

REPORT INFORMATION
  Report Type: Spontaneous
  Country: US (occurrence: US)
  Receive Date: 20160517
  Receipt Date: 20160517
  Transmission Date: 20160815
  Serious: No
  Sender: FDA-Public Use
  Company Number: US-AMGEN-USASP2016060645

PATIENT
  Age: 44 Year
  Sex: Female

DRUGS (1)
  1. ENBREL [Suspect]
     Active Substance: ETANERCEPT
     Indication: RHEUMATOID ARTHRITIS
     Dosage: 50 MG, WEEKLY
     Route: 065
     Dates: start: 201604

REACTIONS (5)
  - Laboratory test abnormal [Unknown]
  - Cough [Unknown]
  - Vulvovaginal swelling [Unknown]
  - Vulvovaginal dryness [Unknown]
  - Vaginal cyst [Unknown]

NARRATIVE: CASE EVENT DATE: 2016
